FAERS Safety Report 23845689 (Version 1)
Quarter: 2024Q2

REPORT INFORMATION
  Report Type: Spontaneous
  Country: US (occurrence: US)
  Receive Date: 20240511
  Receipt Date: 20240511
  Transmission Date: 20240716
  Serious: Yes (Hospitalization, Other)
  Sender: FDA-Public Use
  Company Number: US-AMGEN-USASP2024088890

PATIENT
  Age: 71 Year
  Sex: Female

DRUGS (15)
  1. AMJEVITA [Suspect]
     Active Substance: ADALIMUMAB-ATTO
     Indication: Pyoderma gangrenosum
     Dosage: 80 MILLIGRAM/ 0.8 ML
     Route: 058
     Dates: start: 20240225, end: 2024
  2. ALBUTEROL [Concomitant]
     Active Substance: ALBUTEROL
  3. OXYCODONE [Concomitant]
     Active Substance: OXYCODONE\OXYCODONE HYDROCHLORIDE
  4. METOPROLOL [Concomitant]
     Active Substance: METOPROLOL
  5. POTASSIUM CHLORIDE [Concomitant]
     Active Substance: POTASSIUM CHLORIDE
  6. ADVAIR HFA [Concomitant]
     Active Substance: FLUTICASONE PROPIONATE\SALMETEROL XINAFOATE
  7. FUROSEMIDE [Concomitant]
     Active Substance: FUROSEMIDE
  8. TRIAMCINOLONE [Concomitant]
     Active Substance: TRIAMCINOLONE
  9. ELIQUIS [Concomitant]
     Active Substance: APIXABAN
  10. FLECAINIDE [Concomitant]
     Active Substance: FLECAINIDE
  11. GABAPENTIN [Concomitant]
     Active Substance: GABAPENTIN
  12. ZOSYN [Concomitant]
     Active Substance: PIPERACILLIN SODIUM\TAZOBACTAM SODIUM
  13. VANCOMYCIN [Concomitant]
     Active Substance: VANCOMYCIN
  14. DOXYCYCLINE [Concomitant]
     Active Substance: DOXYCYCLINE
  15. CIPRO [Concomitant]
     Active Substance: CIPROFLOXACIN\CIPROFLOXACIN HYDROCHLORIDE

REACTIONS (2)
  - Injection site cellulitis [Recovered/Resolved]
  - Off label use [Unknown]

NARRATIVE: CASE EVENT DATE: 20240101
